FAERS Safety Report 13495613 (Version 2)
Quarter: 2017Q3

REPORT INFORMATION
  Report Type: Report from Study
  Country: US (occurrence: US)
  Receive Date: 20170428
  Receipt Date: 20170710
  Transmission Date: 20171127
  Serious: Yes (Hospitalization)
  Sender: FDA-Public Use
  Company Number: US-CELGENEUS-USA-20170407735

PATIENT
  Age: 52 Year
  Sex: Male
  Weight: 85.81 kg

DRUGS (6)
  1. PANCRELIPASE. [Concomitant]
     Active Substance: PANCRELIPASE
     Indication: SUPPLEMENTATION THERAPY
     Dosage: 24/76/120, 10 CAPSULES
     Route: 048
     Dates: start: 20170407
  2. ABRAXANE [Suspect]
     Active Substance: PACLITAXEL
     Dosage: 75 MILLIGRAM/SQ. METER
     Route: 041
     Dates: start: 20170405, end: 20170420
  3. GEMCITABINE [Suspect]
     Active Substance: GEMCITABINE\GEMCITABINE HYDROCHLORIDE
     Indication: PANCREATIC CARCINOMA
     Route: 065
     Dates: end: 20170420
  4. ABRAXANE [Suspect]
     Active Substance: PACLITAXEL
     Indication: PANCREATIC CARCINOMA
     Dosage: 75 MILLIGRAM/SQ. METER
     Route: 041
     Dates: start: 20160926
  5. OXYCODONE [Concomitant]
     Active Substance: OXYCODONE
     Indication: PAIN
     Dosage: 40 MILLIGRAM
     Route: 048
     Dates: start: 20170306
  6. ONDANSETRON [Concomitant]
     Active Substance: ONDANSETRON
     Indication: NAUSEA
     Dosage: 24 MILLIGRAM
     Route: 048
     Dates: start: 20160926

REACTIONS (2)
  - Chills [Recovered/Resolved]
  - Pyrexia [Recovered/Resolved]

NARRATIVE: CASE EVENT DATE: 20170420
